FAERS Safety Report 6407476-9 (Version None)
Quarter: 2009Q4

REPORT INFORMATION
  Report Type: 
  Country: None (occurrence: None)
  Receive Date: 20091020
  Receipt Date: 20091019
  Transmission Date: 20100525
  Serious: Yes (Hospitalization, Other)
  Sender: FDA-Public Use
  Company Number: US-TEVA-212763USA

PATIENT
  Age: 29 Year
  Sex: Male

DRUGS (3)
  1. FLUOROURACIL [Suspect]
     Indication: COLORECTAL CANCER
  2. PREDNISOLONE [Concomitant]
     Indication: IMMUNOSUPPRESSION
  3. TACROLIMUS [Concomitant]
     Indication: IMMUNOSUPPRESSION

REACTIONS (1)
  - LIVER TRANSPLANT REJECTION [None]
